FAERS Safety Report 8058168-4 (Version None)
Quarter: 2012Q1

REPORT INFORMATION
  Report Type: 
  Country: None (occurrence: None)
  Receive Date: 20120120
  Receipt Date: 20120110
  Transmission Date: 20120608
  Serious: Yes (Hospitalization, Other)
  Sender: FDA-Public Use
  Company Number: US-BAYER-2011-038360

PATIENT
  Age: 30 Year
  Sex: Female
  Weight: 61.224 kg

DRUGS (1)
  1. YASMIN [Suspect]
     Indication: PREMENSTRUAL SYNDROME
     Dosage: UNK
     Dates: start: 20071101, end: 20081201

REACTIONS (11)
  - CHOLELITHIASIS [None]
  - ANHEDONIA [None]
  - ECTOPIC PREGNANCY [None]
  - FEAR [None]
  - NEPHROPATHY [None]
  - DEEP VEIN THROMBOSIS [None]
  - POLYCYSTIC OVARIES [None]
  - ANXIETY [None]
  - GALLBLADDER INJURY [None]
  - PAIN [None]
  - QUALITY OF LIFE DECREASED [None]
